FAERS Safety Report 24043653 (Version 3)
Quarter: 2024Q3

REPORT INFORMATION
  Report Type: Report from Study
  Country: FR (occurrence: FR)
  Receive Date: 20240703
  Receipt Date: 20240923
  Transmission Date: 20241016
  Serious: Yes (Hospitalization, Other)
  Sender: BIOGEN
  Company Number: FR-BIOGEN-2024BI01271842

PATIENT
  Age: 59 Year
  Sex: Male
  Weight: 63 kg

DRUGS (17)
  1. OMAVELOXOLONE [Suspect]
     Active Substance: OMAVELOXOLONE
     Indication: Friedreich^s ataxia
     Dosage: 150MG ONCE PER DAY (3 CAPSULES OF 50MG)
     Route: 050
     Dates: start: 20240610, end: 20240627
  2. PREVISCAN [Concomitant]
     Indication: Product used for unknown indication
     Route: 050
     Dates: start: 19900101
  3. PREVISCAN [Concomitant]
     Dosage: PREVISCAN 20MG : ? IN THE EVENING
     Route: 050
  4. GLIMEPIRIDE BGR [Concomitant]
     Indication: Product used for unknown indication
     Dosage: GLIMEPRIDE 2 : 1 MORNING AND 1 EVENING
     Route: 050
     Dates: start: 20000529
  5. IDEBENONE [Concomitant]
     Active Substance: IDEBENONE
     Indication: Product used for unknown indication
     Route: 050
     Dates: start: 20000529
  6. IDEBENONE [Concomitant]
     Active Substance: IDEBENONE
     Dosage: IDEBENONE 300MG : 1 MORNING AND 1 EVENING
     Route: 050
  7. METFORMIN HYDROCHLORIDE [Concomitant]
     Active Substance: METFORMIN HYDROCHLORIDE
     Indication: Product used for unknown indication
     Dosage: METFORMINE ALM 500MG (1 MORNING AND EVENING)
     Route: 050
     Dates: start: 20000529
  8. RAMIPRIL ARL [Concomitant]
     Indication: Product used for unknown indication
     Route: 050
     Dates: start: 20000529
  9. RAMIPRIL ARL [Concomitant]
     Dosage: RAMIPRIL 2.5MG : 1 IN THE EVENING
     Route: 050
  10. ALFUZOSIN [Concomitant]
     Active Substance: ALFUZOSIN
     Indication: Product used for unknown indication
     Route: 050
     Dates: start: 20240429
  11. HERBALS\SAW PALMETTO [Concomitant]
     Active Substance: HERBALS\SAW PALMETTO
     Indication: Product used for unknown indication
     Route: 050
     Dates: start: 20240429
  12. CARVEDILOL [Concomitant]
     Active Substance: CARVEDILOL
     Indication: Product used for unknown indication
     Dosage: KREDEX 12.5 MG : 2 IN THE MORNING
     Route: 050
  13. ESOMEPRAZOLE [Concomitant]
     Active Substance: ESOMEPRAZOLE
     Indication: Product used for unknown indication
     Dosage: INEXIUM 20 : 1 MORNING AND 1 EVENING
     Route: 050
  14. XANAX [Concomitant]
     Active Substance: ALPRAZOLAM
     Indication: Product used for unknown indication
     Route: 050
  15. XARELTO [Concomitant]
     Active Substance: RIVAROXABAN
     Indication: Product used for unknown indication
     Dosage: 20 MG IN THE MORNING
     Route: 050
  16. DAPAGLIFLOZIN [Concomitant]
     Active Substance: DAPAGLIFLOZIN
     Indication: Product used for unknown indication
     Dosage: 10 MG IN THE MORNING
     Route: 050
  17. INSPRA [Concomitant]
     Active Substance: EPLERENONE
     Indication: Product used for unknown indication
     Dosage: 25 MG IN THE MORNING
     Route: 050

REACTIONS (3)
  - Cardiac failure [Not Recovered/Not Resolved]
  - Benign prostatic hyperplasia [Unknown]
  - Urinary tract infection [Unknown]

NARRATIVE: CASE EVENT DATE: 20240626
